FAERS Safety Report 10026312 (Version 2)
Quarter: 2014Q1

REPORT INFORMATION
  Report Type: Spontaneous
  Country: VN (occurrence: VN)
  Receive Date: 20140321
  Receipt Date: 20140328
  Transmission Date: 20141002
  Serious: Yes (Other)
  Sender: FDA-Public Use
  Company Number: VN-ROCHE-1363606

PATIENT
  Age: 58 Year
  Sex: Male

DRUGS (7)
  1. XELODA [Suspect]
     Indication: COLORECTAL CANCER RECURRENT
     Dosage: FOR 14 DAYS THEN STOPS TAKING DRUG FOR 7 DAYS
     Route: 048
     Dates: start: 201210
  2. XELODA [Suspect]
     Indication: METASTASES TO LIVER
  3. BEVACIZUMAB [Suspect]
     Indication: COLORECTAL CANCER RECURRENT
     Route: 065
  4. BEVACIZUMAB [Suspect]
     Indication: METASTASES TO LIVER
  5. OXALIPLATIN [Concomitant]
  6. FOLINIC ACID [Concomitant]
  7. FLUOROURACIL [Concomitant]

REACTIONS (1)
  - Disease progression [Unknown]
